FAERS Safety Report 12204815 (Version 1)
Quarter: 2016Q1

REPORT INFORMATION
  Report Type: Report from Study
  Country: ES (occurrence: ES)
  Receive Date: 20160323
  Receipt Date: 20160323
  Transmission Date: 20160526
  Serious: Yes (Hospitalization)
  Sender: FDA-Public Use
  Company Number: ES-PFIZER INC-2016166166

PATIENT
  Age: 48 Year
  Sex: Male

DRUGS (7)
  1. TIAPRIZAL [Concomitant]
     Active Substance: TIAPRIDE HYDROCHLORIDE
     Indication: ALCOHOLISM
     Dosage: 100 MG, 2X/DAY (1-0-1)
     Route: 048
     Dates: start: 20141217, end: 20150113
  2. ALDACTONE [Suspect]
     Active Substance: SPIRONOLACTONE
     Indication: ASCITES
     Dosage: 100 MG, 2X/DAY (2-0-0)
     Route: 048
     Dates: start: 20141217, end: 20150113
  3. PANTOPRAZOL [Concomitant]
     Active Substance: PANTOPRAZOLE SODIUM
     Indication: PROPHYLAXIS AGAINST GASTROINTESTINAL ULCER
     Dosage: 40 MG, 1X/DAY (1-0-0)
     Route: 048
     Dates: start: 20140609
  4. ACFOL [Concomitant]
     Active Substance: FOLIC ACID
     Dosage: 5 MG, 1X/DAY (1-0-0)
     Route: 048
     Dates: start: 20141217
  5. TRANXILIUM [Concomitant]
     Active Substance: CLORAZEPATE DIPOTASSIUM
     Indication: INSOMNIA
     Dosage: 15 MG, UNK
     Route: 048
     Dates: start: 20141217
  6. SEGURIL [Interacting]
     Active Substance: FUROSEMIDE
     Indication: ASCITES
     Dosage: 80 MG, 1X/DAY (2 TABLETS OF 40 MG-0-0)
     Route: 048
     Dates: start: 20140609, end: 20150113
  7. BENEXOL B1 B6 B12 /00176001/ [Concomitant]
     Dosage: (1-1-1)
     Route: 048
     Dates: start: 20141217

REACTIONS (2)
  - Drug interaction [Recovered/Resolved]
  - Hyponatraemia [Recovered/Resolved]

NARRATIVE: CASE EVENT DATE: 20150113
